FAERS Safety Report 18212379 (Version 1)
Quarter: 2020Q3

REPORT INFORMATION
  Report Type: Spontaneous
  Country: US (occurrence: US)
  Receive Date: 20200828
  Receipt Date: 20200828
  Transmission Date: 20201103
  Serious: No
  Sender: FDA-Public Use
  Company Number: None

PATIENT
  Age: 31 Year
  Sex: Female
  Weight: 58.5 kg

DRUGS (2)
  1. CIPROFLOXACIN. [Suspect]
     Active Substance: CIPROFLOXACIN
  2. CEFDINIR 300MG [Suspect]
     Active Substance: CEFDINIR
     Indication: EAR INFECTION
     Dosage: ?          QUANTITY:1 TABLET(S);?
     Route: 048

REACTIONS (5)
  - Heart rate increased [None]
  - Tremor [None]
  - Dizziness [None]
  - Pruritus [None]
  - Fatigue [None]

NARRATIVE: CASE EVENT DATE: 20200819
